FAERS Safety Report 19115951 (Version 2)
Quarter: 2021Q4

REPORT INFORMATION
  Report Type: 
  Country: US (occurrence: US)
  Receive Date: 20210409
  Receipt Date: 20211028
  Transmission Date: 20220303
  Serious: Yes (Other)
  Sender: FDA-Public Use
  Company Number: US-C B FLEET CO INC-202010-US-003795

PATIENT
  Sex: Female

DRUGS (1)
  1. MONISTAT 1 COMBINATION PACK [Suspect]
     Active Substance: MICONAZOLE NITRATE
     Indication: Fungal infection
     Dosage: USED ONE DAY
     Route: 067
     Dates: start: 20201020

REACTIONS (5)
  - Abortion spontaneous [Recovered/Resolved]
  - Condition aggravated [Recovered/Resolved]
  - Vulvovaginal burning sensation [Recovered/Resolved]
  - Maternal exposure during pregnancy [None]
  - Off label use [None]

NARRATIVE: CASE EVENT DATE: 20201020
